FAERS Safety Report 9754383 (Version 3)
Quarter: 2014Q1

REPORT INFORMATION
  Report Type: Spontaneous
  Country: US (occurrence: US)
  Receive Date: 20131213
  Receipt Date: 20140310
  Transmission Date: 20141002
  Serious: No
  Sender: FDA-Public Use
  Company Number: US-PFIZER INC-2013356180

PATIENT
  Age: 60 Year
  Sex: Female
  Weight: 95.24 kg

DRUGS (7)
  1. XELJANZ [Suspect]
     Indication: RHEUMATOID ARTHRITIS
     Dosage: 5MG (1 TABLET) EVERY TWELVE HOURS
     Route: 048
     Dates: start: 20131018, end: 201401
  2. PREDNISONE [Concomitant]
     Dosage: 5 MG, UNK
  3. PRAVASTATIN [Concomitant]
     Dosage: 10 MG, UNK
  4. CALCIUM [Concomitant]
     Dosage: 500
  5. BIOTIN [Concomitant]
     Dosage: 5000
  6. VITAMIN D3 [Concomitant]
     Dosage: 10000 IU, UNK
  7. IBUPROFEN M [Concomitant]
     Dosage: 200 MG, UNK

REACTIONS (9)
  - Muscle spasms [Recovered/Resolved]
  - Nasopharyngitis [Unknown]
  - Seasonal allergy [Unknown]
  - Cough [Unknown]
  - Dysphonia [Unknown]
  - Fatigue [Unknown]
  - Tooth infection [Unknown]
  - Paraesthesia [Unknown]
  - Facial pain [Unknown]
